FAERS Safety Report 23388284 (Version 1)
Quarter: 2024Q1

REPORT INFORMATION
  Report Type: Spontaneous
  Country: BR (occurrence: BR)
  Receive Date: 20240110
  Receipt Date: 20240110
  Transmission Date: 20240410
  Serious: Yes (Other)
  Sender: FDA-Public Use
  Company Number: BR-TEVA-VS-3139670

PATIENT
  Age: 77 Year

DRUGS (1)
  1. AZILECT [Suspect]
     Active Substance: RASAGILINE MESYLATE
     Route: 065

REACTIONS (3)
  - Myocardial infarction [Recovered/Resolved]
  - Osteoarthritis [Not Recovered/Not Resolved]
  - COVID-19 [Unknown]
